FAERS Safety Report 9217936 (Version 1)
Quarter: 2013Q2

REPORT INFORMATION
  Report Type: Spontaneous
  Country: US (occurrence: US)
  Receive Date: 20130408
  Receipt Date: 20130408
  Transmission Date: 20140414
  Serious: Yes (Other)
  Sender: FDA-Public Use
  Company Number: PHEH2013US007792

PATIENT
  Age: 17 Year
  Sex: Female

DRUGS (1)
  1. GLEEVEC [Suspect]
     Indication: SYNOVITIS
     Dosage: 400 MG, UNK
     Route: 065
     Dates: start: 20130213

REACTIONS (3)
  - Asthma [Unknown]
  - Dyspnoea [Unknown]
  - Pulmonary oedema [Unknown]
